FAERS Safety Report 6191906-4 (Version None)
Quarter: 2009Q2

REPORT INFORMATION
  Report Type: 
  Country: None (occurrence: None)
  Receive Date: 20090515
  Receipt Date: 20090508
  Transmission Date: 20091009
  Serious: Yes (Other)
  Sender: FDA-Public Use
  Company Number: US-JNJFOC-20090502535

PATIENT
  Sex: Female
  Weight: 77.11 kg

DRUGS (5)
  1. DURAGESIC-100 [Suspect]
     Route: 062
  2. DURAGESIC-100 [Suspect]
     Indication: PAIN
     Route: 062
  3. FENTANYL TRANSDERMAL SYSTEM [Suspect]
     Indication: PAIN
     Route: 062
  4. ENBREL [Suspect]
     Indication: PSORIASIS
     Route: 058
  5. DILANTIN [Concomitant]
     Indication: CONVULSION
     Route: 048

REACTIONS (11)
  - APPLICATION SITE PRURITUS [None]
  - APPLICATION SITE REACTION [None]
  - APPLICATION SITE SCAB [None]
  - FLUSHING [None]
  - INFLUENZA LIKE ILLNESS [None]
  - PAIN [None]
  - PRODUCT QUALITY ISSUE [None]
  - PSORIASIS [None]
  - STRESS [None]
  - TREMOR [None]
  - WITHDRAWAL SYNDROME [None]
